FAERS Safety Report 7509234-0 (Version None)
Quarter: 2011Q2

REPORT INFORMATION
  Report Type: 
  Country: None (occurrence: None)
  Receive Date: 20110527
  Receipt Date: 20110523
  Transmission Date: 20111010
  Serious: Yes (Hospitalization, Disabling)
  Sender: FDA-Public Use
  Company Number: DE-ROCHE-706884

PATIENT
  Sex: Female
  Weight: 67 kg

DRUGS (9)
  1. TOCILIZUMAB [Suspect]
     Route: 042
     Dates: start: 20100727
  2. OMEPRAZOLE [Concomitant]
     Indication: PROPHYLAXIS
     Route: 048
  3. PREDNISOLONE [Concomitant]
     Indication: RHEUMATOID ARTHRITIS
     Route: 048
     Dates: start: 19920101
  4. METHOTREXATE [Suspect]
     Indication: RHEUMATOID ARTHRITIS
     Route: 048
     Dates: start: 20080701, end: 20100301
  5. ALENDRONSAEURE [Concomitant]
     Indication: OSTEOPOROSIS
     Route: 048
     Dates: start: 20080401
  6. METHOTREXATE [Suspect]
     Route: 048
     Dates: start: 20100727
  7. TOCILIZUMAB [Suspect]
     Indication: RHEUMATOID ARTHRITIS
     Dosage: GIVEN ON 30 OCT 2009, 30 NOV 2009, 04 JAN 2010
     Route: 042
     Dates: start: 20091030, end: 20100104
  8. KATADOLON [Concomitant]
     Indication: RHEUMATOID ARTHRITIS
     Route: 048
     Dates: start: 20080401
  9. PREGABALIN [Concomitant]
     Dates: start: 20080301

REACTIONS (1)
  - SQUAMOUS CELL CARCINOMA [None]
